FAERS Safety Report 18217649 (Version 1)
Quarter: 2020Q3

REPORT INFORMATION
  Report Type: Spontaneous
  Country: US (occurrence: US)
  Receive Date: 20200831
  Receipt Date: 20200831
  Transmission Date: 20201103
  Serious: No
  Sender: FDA-Public Use
  Company Number: None

PATIENT
  Age: 56 Year
  Sex: Male

DRUGS (2)
  1. MEROPENEM (MEROPENEM 1GM/VIL INJ) [Suspect]
     Active Substance: MEROPENEM
     Indication: DEVICE RELATED INFECTION
     Dosage: ?          OTHER STRENGTH:1 GM/VIL;?
     Dates: start: 20200428, end: 20200504
  2. VANCOMYCIN (VANCOMYCIN 1.5GM/VIL INJ) [Suspect]
     Active Substance: VANCOMYCIN
     Indication: DEVICE RELATED INFECTION
     Dosage: ?          OTHER STRENGTH:1.5 GM/VIL;?
     Dates: start: 20200428, end: 20200502

REACTIONS (7)
  - Urticaria [None]
  - Eosinophilia [None]
  - Alanine aminotransferase increased [None]
  - Rash [None]
  - Foreign body sensation in eyes [None]
  - Swelling face [None]
  - Pruritus [None]

NARRATIVE: CASE EVENT DATE: 20200518
